FAERS Safety Report 6712970-7 (Version None)
Quarter: 2010Q2

REPORT INFORMATION
  Report Type: 
  Country: None (occurrence: None)
  Receive Date: 20100505
  Receipt Date: 20100505
  Transmission Date: 20101027
  Serious: Yes (Hospitalization)
  Sender: FDA-Public Use
  Company Number: None

PATIENT
  Age: 59 Year
  Sex: Female
  Weight: 86.1834 kg

DRUGS (3)
  1. AREDIA [Suspect]
     Indication: BREAST CANCER METASTATIC
     Dosage: AREDIA MONTHLY FOR 2 YRS IV DRIP
     Route: 041
     Dates: start: 20000401, end: 20021001
  2. AREDIA [Suspect]
     Indication: METASTASES TO BONE
     Dosage: AREDIA MONTHLY FOR 2 YRS IV DRIP
     Route: 041
     Dates: start: 20000401, end: 20021001
  3. ZOLODRONIC ACID NORVARTIS [Suspect]
     Dosage: ZOMETA MONTHLY FOR 5 YRS IV DRIP
     Route: 041
     Dates: start: 20021001, end: 20071001

REACTIONS (8)
  - DEVICE DAMAGE [None]
  - FEMUR FRACTURE [None]
  - FOOT FRACTURE [None]
  - FRACTURE NONUNION [None]
  - GROIN PAIN [None]
  - JAW FRACTURE [None]
  - OSTEONECROSIS OF JAW [None]
  - OVERDOSE [None]
